FAERS Safety Report 4817395-7 (Version None)
Quarter: 2005Q4

REPORT INFORMATION
  Report Type: 
  Country: None (occurrence: None)
  Receive Date: 20051101
  Receipt Date: 20050711
  Transmission Date: 20060501
  Serious: Yes (Death, Hospitalization)
  Sender: FDA-Public Use
  Company Number: HQWYE107611JUL05

PATIENT
  Sex: Male

DRUGS (26)
  1. ENBREL [Suspect]
     Indication: RHEUMATOID ARTHRITIS
     Route: 058
     Dates: start: 20050426
  2. METHOTREXATE [Suspect]
     Route: 048
     Dates: start: 19890511, end: 19940401
  3. METHOTREXATE [Suspect]
     Route: 048
     Dates: start: 19950516, end: 20010425
  4. METHOTREXATE [Suspect]
     Route: 048
     Dates: start: 20010426, end: 20020715
  5. METHOTREXATE [Suspect]
     Route: 048
     Dates: start: 20050301, end: 20050418
  6. METHOTREXATE [Suspect]
     Route: 048
     Dates: start: 20050419, end: 20050708
  7. MUCOSTA [Concomitant]
     Dates: end: 20050711
  8. VOLTAREN [Concomitant]
     Dates: end: 20050708
  9. FOLIAMIN [Concomitant]
     Dates: start: 20011001, end: 20050708
  10. PREDONINE [Concomitant]
     Dates: start: 19880901, end: 20050321
  11. PREDONINE [Concomitant]
     Dates: start: 20050301
  12. LANSOPRAZOLE [Concomitant]
     Dates: end: 20050711
  13. SELOKEN [Concomitant]
     Dates: end: 20050711
  14. PROBUCOL [Concomitant]
     Dates: end: 20050711
  15. ASPIRIN [Concomitant]
     Dates: end: 20050711
  16. DIOVAN [Concomitant]
     Dates: end: 20050711
  17. LIPITOR [Concomitant]
  18. AURANOFIN [Concomitant]
  19. SODIUM AUROTHIOMALATE [Concomitant]
  20. BUCILLAMINE [Concomitant]
  21. PENICILLAMINE [Concomitant]
  22. SULFASALAZINE [Concomitant]
  23. CYCLOPHOSPHAMIDE [Concomitant]
  24. ACTARIT [Concomitant]
  25. RHEUMATREX [Concomitant]
  26. DILTIAZEM HYDROCHLORIDE [Concomitant]
     Dates: end: 20050711

REACTIONS (8)
  - CARDIAC FAILURE [None]
  - CYTOMEGALOVIRUS INFECTION [None]
  - INTERSTITIAL LUNG DISEASE [None]
  - PLATELET COUNT DECREASED [None]
  - PNEUMOCYSTIS JIROVECI INFECTION [None]
  - PSEUDOMONAS INFECTION [None]
  - RESPIRATORY FAILURE [None]
  - SHOCK [None]
